FAERS Safety Report 7484036-2 (Version None)
Quarter: 2011Q2

REPORT INFORMATION
  Report Type: 
  Country: None (occurrence: None)
  Receive Date: 20110509
  Receipt Date: 20110427
  Transmission Date: 20111010
  Serious: Yes (Life-Threatening, Hospitalization)
  Sender: FDA-Public Use
  Company Number: 905572

PATIENT
  Age: 33 Year
  Sex: Female

DRUGS (7)
  1. TEMAZEPAM [Concomitant]
  2. DOCETAXEL [Suspect]
     Indication: BREAST CANCER
     Dosage: 136 MG MILLIGRAM(S), INTRAVENOUS
     Route: 042
     Dates: start: 20110318, end: 20110318
  3. DOXORUBICIN HYDROCHLORIDE [Suspect]
     Indication: BREAST CANCER
     Dosage: 109 MG MILLIGRAM(S), INTRAVENOUS
     Route: 042
     Dates: start: 20110318, end: 20110318
  4. (DOMPERIDONE) [Concomitant]
  5. CYCLOPHOSPHAMIDE [Suspect]
     Indication: BREAST CANCER
     Dosage: 1086 MG MILLIGRAM(S), INTRAVENOUS (NOT OTHERISE SPECIFIED)
     Route: 042
     Dates: start: 20110318, end: 20110318
  6. (FILGRASTIM) [Concomitant]
  7. DEXAMETHASONE [Concomitant]

REACTIONS (3)
  - PLEURAL EFFUSION [None]
  - INTESTINAL ISCHAEMIA [None]
  - TACHYCARDIA [None]
